FAERS Safety Report 4630112-9 (Version None)
Quarter: 2005Q2

REPORT INFORMATION
  Report Type: 
  Country: None (occurrence: None)
  Receive Date: 20050408
  Receipt Date: 20050114
  Transmission Date: 20051028
  Serious: Yes (Other)
  Sender: FDA-Public Use
  Company Number: AU-GLAXOSMITHKLINE-B0365298A

PATIENT
  Age: 27 Year
  Sex: Female
  Weight: 70 kg

DRUGS (8)
  1. LAMICTAL [Suspect]
     Indication: EPILEPSY
     Route: 048
     Dates: start: 19800101
  2. ACETAMINOPHEN [Suspect]
     Dosage: 1G FOUR TIMES PER DAY
     Route: 048
     Dates: start: 20041210, end: 20050104
  3. OXYCODONE [Suspect]
     Dosage: 5MG TWICE PER DAY
     Route: 048
     Dates: start: 20050101, end: 20050105
  4. VALIUM [Concomitant]
     Indication: ILL-DEFINED DISORDER
     Dosage: 10MG UNKNOWN
     Route: 030
  5. CLONAZEPAM [Concomitant]
     Indication: EPILEPSY
     Dosage: 10MG PER DAY
     Route: 048
     Dates: start: 19800101
  6. VALIUM [Concomitant]
     Indication: EPILEPSY
     Dosage: 5MG PER DAY
     Route: 048
     Dates: start: 19950101
  7. ZONISAMIDE [Concomitant]
     Indication: EPILEPSY
     Dosage: 300MG PER DAY
     Route: 048
     Dates: start: 19900101
  8. MONOFEME [Concomitant]
     Indication: CONTRACEPTION
     Route: 048
     Dates: start: 19950101

REACTIONS (7)
  - ANTICONVULSANT DRUG LEVEL BELOW THERAPEUTIC [None]
  - APHASIA [None]
  - DRUG INEFFECTIVE [None]
  - DRUG INTERACTION [None]
  - GRAND MAL CONVULSION [None]
  - HYPOTONIA [None]
  - RESPIRATORY DEPRESSION [None]
